FAERS Safety Report 25542720 (Version 2)
Quarter: 2025Q3

REPORT INFORMATION
  Report Type: Spontaneous
  Country: EU (occurrence: EU)
  Receive Date: 20250711
  Receipt Date: 20250825
  Transmission Date: 20251020
  Serious: Yes (Hospitalization, Other)
  Sender: AUROBINDO
  Company Number: EU-BRISTOL-MYERS SQUIBB COMPANY-2025-087578

PATIENT
  Age: 50 Year
  Sex: Male

DRUGS (4)
  1. CARBOPLATIN [Suspect]
     Active Substance: CARBOPLATIN
     Indication: Lung cancer metastatic
     Route: 042
     Dates: start: 202111, end: 202112
  2. PACLITAXEL [Suspect]
     Active Substance: PACLITAXEL
     Indication: Lung cancer metastatic
     Route: 042
     Dates: start: 202111, end: 202112
  3. NIVOLUMAB [Suspect]
     Active Substance: NIVOLUMAB
     Indication: Lung cancer metastatic
     Route: 042
     Dates: start: 202111, end: 202203
  4. NELVUTAMIG [Suspect]
     Active Substance: NELVUTAMIG
     Indication: Lung cancer metastatic
     Route: 042
     Dates: start: 202111, end: 202203

REACTIONS (3)
  - Haemoptysis [Unknown]
  - Malignant neoplasm progression [Unknown]
  - No adverse event [Unknown]

NARRATIVE: CASE EVENT DATE: 20220101
